FAERS Safety Report 7788476-3 (Version None)
Quarter: 2011Q3

REPORT INFORMATION
  Report Type: 
  Country: None (occurrence: None)
  Receive Date: 20110928
  Receipt Date: 20110920
  Transmission Date: 20111222
  Serious: Yes (Hospitalization, Other)
  Sender: FDA-Public Use
  Company Number: 2010SP005477

PATIENT
  Age: 24 Year
  Sex: Female
  Weight: 79.3795 kg

DRUGS (1)
  1. NUVARING [Suspect]
     Indication: CONTRACEPTION
     Dates: start: 20080101, end: 20080401

REACTIONS (22)
  - DEEP VEIN THROMBOSIS [None]
  - BLOOD URINE PRESENT [None]
  - CHRONIC TONSILLITIS [None]
  - CHEST PAIN [None]
  - PREMATURE RUPTURE OF MEMBRANES [None]
  - SUBCHORIONIC HAEMORRHAGE [None]
  - FLANK PAIN [None]
  - ABDOMINAL PAIN [None]
  - MULTIPLE INJURIES [None]
  - HEADACHE [None]
  - ANTEPARTUM HAEMORRHAGE [None]
  - UTERINE DISORDER [None]
  - THROMBOSIS [None]
  - PREGNANCY WITH CONTRACEPTIVE DEVICE [None]
  - VULVOVAGINAL CANDIDIASIS [None]
  - PREMATURE SEPARATION OF PLACENTA [None]
  - PREMATURE DELIVERY [None]
  - PAIN IN EXTREMITY [None]
  - STREPTOCOCCUS TEST POSITIVE [None]
  - TONSILLAR HYPERTROPHY [None]
  - MATERNAL EXPOSURE DURING PREGNANCY [None]
  - CAESAREAN SECTION [None]
